FAERS Safety Report 23455984 (Version 1)
Quarter: 2024Q1

REPORT INFORMATION
  Report Type: Spontaneous
  Country: VE (occurrence: VE)
  Receive Date: 20240130
  Receipt Date: 20240130
  Transmission Date: 20240410
  Serious: Yes (Death, Other)
  Sender: FDA-Public Use
  Company Number: VE-TAKEDA-2023TUS078260

PATIENT
  Sex: Male

DRUGS (1)
  1. ICLUSIG [Suspect]
     Active Substance: PONATINIB
     Indication: Chronic myeloid leukaemia
     Dosage: 45 MILLIGRAM
     Route: 065

REACTIONS (6)
  - Respiratory arrest [Fatal]
  - Respiratory disorder [Fatal]
  - Dyspnoea [Fatal]
  - Haematotoxicity [Unknown]
  - Platelet count abnormal [Unknown]
  - Respiratory tract infection [Unknown]
